FAERS Safety Report 22127492 (Version 2)
Quarter: 2024Q2

REPORT INFORMATION
  Report Type: Spontaneous
  Country: CA (occurrence: CA)
  Receive Date: 20230322
  Receipt Date: 20240510
  Transmission Date: 20240715
  Serious: Yes (Other)
  Sender: FDA-Public Use
  Company Number: CA-CELLTRION INC.-2022CA009448

PATIENT

DRUGS (8)
  1. INFLECTRA [Suspect]
     Active Substance: INFLIXIMAB-DYYB
     Indication: Crohn^s disease
     Dosage: 400 MG, 0, 2 AND 6 THEN EVERY 8 WEEKS
     Route: 042
     Dates: start: 20220205
  2. INFLECTRA [Suspect]
     Active Substance: INFLIXIMAB-DYYB
     Indication: Crohn^s disease
     Dosage: 400 MG, 0, 2 AND 6 THEN EVERY 8 WEEKS
     Route: 042
     Dates: start: 20220319
  3. INFLECTRA [Suspect]
     Active Substance: INFLIXIMAB-DYYB
     Dosage: 400 MG, 0, 2 AND 6 THEN EVERY 8 WEEKS
     Route: 042
     Dates: start: 20220519
  4. INFLECTRA [Suspect]
     Active Substance: INFLIXIMAB-DYYB
     Dosage: 400 MG, 0, 2 AND 6 THEN EVERY 8 WEEKS
     Route: 042
     Dates: start: 20220714
  5. INFLECTRA [Suspect]
     Active Substance: INFLIXIMAB-DYYB
     Dosage: 400 MG, 0, 2 AND 6 THEN EVERY 8 WEEKS
     Route: 042
     Dates: start: 20220908
  6. INFLECTRA [Suspect]
     Active Substance: INFLIXIMAB-DYYB
     Dosage: 400 MG, 0, 2 AND 6 THEN EVERY 8 WEEKS
     Route: 042
     Dates: start: 20221109
  7. INFLECTRA [Suspect]
     Active Substance: INFLIXIMAB-DYYB
     Dosage: 400 MG, 0, 2 AND 6 THEN EVERY 8 WEEKS
     Route: 042
     Dates: start: 20230112
  8. PREDNISONE [Concomitant]
     Active Substance: PREDNISONE
     Dosage: 1 DF (2 TABLETS- UNKNOWN DOSE)
     Route: 065
     Dates: start: 202111

REACTIONS (9)
  - Weight increased [Unknown]
  - Rhabdomyolysis [Unknown]
  - Weight increased [Not Recovered/Not Resolved]
  - Condition aggravated [Recovering/Resolving]
  - Anal fistula [Unknown]
  - Mental disorder [Recovering/Resolving]
  - Abscess [Unknown]
  - Depression [Unknown]
  - Anxiety [Unknown]

NARRATIVE: CASE EVENT DATE: 20220519
